FAERS Safety Report 7610462-4 (Version None)
Quarter: 2011Q3

REPORT INFORMATION
  Report Type: 
  Country: None (occurrence: None)
  Receive Date: 20110707
  Receipt Date: 20110621
  Transmission Date: 20111222
  Serious: Yes (Other)
  Sender: FDA-Public Use
  Company Number: TPA2011A03332

PATIENT
  Age: 73 Year
  Sex: Male

DRUGS (14)
  1. ACTOPLUS MET [Suspect]
     Indication: DIABETES MELLITUS
     Dosage: 2 IN 1 D, PER ORAL
     Route: 048
     Dates: start: 20100701
  2. ASPIRIN [Concomitant]
  3. CARBETOLOL (ALL OTHER THERAPEUTIC PRODUCTS) [Concomitant]
  4. COREG [Concomitant]
  5. AMLOIDIPNE (AMLODIPINE) [Concomitant]
  6. DICLOFENAC SODIIUM (DICLOFENAC SODIIUM) [Concomitant]
  7. NORVASC [Concomitant]
  8. GUAIFENESIN DM (GUAIFENESIN, DEXTROMETHORPHAN HYDROBROMIDE) [Concomitant]
  9. PHENOZOPYRIDINE (PHENAZOPYRIDINE) [Concomitant]
  10. POLYETHYLENE GLUCOL (MACROGOL) [Concomitant]
  11. NASONEX [Concomitant]
  12. TAMSULOSIN HCL [Concomitant]
  13. DIOVAN HCT [Concomitant]
  14. LIPITOR [Concomitant]

REACTIONS (1)
  - BLADDER CANCER [None]
